FAERS Safety Report 17366808 (Version 1)
Quarter: 2020Q1

REPORT INFORMATION
  Report Type: Spontaneous
  Country: FR (occurrence: FR)
  Receive Date: 20200204
  Receipt Date: 20200204
  Transmission Date: 20200409
  Serious: Yes (Hospitalization)
  Sender: FDA-Public Use
  Company Number: FR-PFIZER INC-2020044787

PATIENT
  Age: 70 Year
  Sex: Female
  Weight: 79 kg

DRUGS (5)
  1. XANAX [Suspect]
     Active Substance: ALPRAZOLAM
     Indication: ANXIETY
     Dosage: 0.5 MG, 1X/DAY
     Route: 048
     Dates: start: 20191226, end: 20191229
  2. SEVOFLURANE BAXTER [Suspect]
     Active Substance: SEVOFLURANE
     Indication: GENERAL ANAESTHESIA
     Dosage: UNK, 1X/DAY
     Route: 055
     Dates: start: 20191227, end: 20191227
  3. LANSOPRAZOLE MYLAN [Suspect]
     Active Substance: LANSOPRAZOLE
     Indication: GASTRITIS
     Dosage: 30 MG, 1X/DAY
     Route: 048
     Dates: start: 20191226, end: 20191229
  4. FURADANTINE [Suspect]
     Active Substance: NITROFURANTOIN
     Indication: INJECTION
     Dosage: 300 MG, 1X/DAY
     Route: 048
     Dates: start: 201912, end: 20191228
  5. TEMESTA [LORAZEPAM] [Suspect]
     Active Substance: LORAZEPAM
     Indication: ANXIETY
     Dosage: 1 MG, 1X/DAY
     Route: 048
     Dates: start: 20191229, end: 20191229

REACTIONS (4)
  - Hepatic failure [Recovered/Resolved]
  - Cholestasis [Recovering/Resolving]
  - Hepatitis acute [Recovering/Resolving]
  - Hepatocellular injury [Recovering/Resolving]

NARRATIVE: CASE EVENT DATE: 20191228
